FAERS Safety Report 19249458 (Version 1)
Quarter: 2021Q2

REPORT INFORMATION
  Report Type: Spontaneous
  Country: US (occurrence: US)
  Receive Date: 20210513
  Receipt Date: 20210513
  Transmission Date: 20210717
  Serious: Yes (Other)
  Sender: FDA-Public Use
  Company Number: US-FARMAPROD-202104-0673

PATIENT
  Age: 73 Year
  Sex: Female

DRUGS (28)
  1. INVELTYS [Concomitant]
     Active Substance: LOTEPREDNOL ETABONATE
  2. CLARITIN [Concomitant]
     Active Substance: LORATADINE
  3. TUMS [Concomitant]
     Active Substance: CALCIUM CARBONATE
     Dosage: 200?500 MG
  4. SODIUM BICARBONATE. [Concomitant]
     Active Substance: SODIUM BICARBONATE
  5. OMEPRAZOLE AND SODIUM BICARBONATE [Concomitant]
     Active Substance: OMEPRAZOLE\SODIUM BICARBONATE
  6. GABAPENTIN. [Concomitant]
     Active Substance: GABAPENTIN
  7. TRAMADOL HCL [Concomitant]
     Active Substance: TRAMADOL HYDROCHLORIDE
  8. MOXIFLOXACIN. [Concomitant]
     Active Substance: MOXIFLOXACIN
  9. METOPROLOL SUCCINATE. [Concomitant]
     Active Substance: METOPROLOL SUCCINATE
  10. ZETIA [Concomitant]
     Active Substance: EZETIMIBE
  11. OXERVATE [Suspect]
     Active Substance: CENEGERMIN-BKBJ
     Indication: NEUROTROPHIC KERATOPATHY
     Route: 047
     Dates: start: 20210405
  12. FLONASE ALLERGY RELIEF [Concomitant]
     Active Substance: FLUTICASONE PROPIONATE
  13. ACICLOVIR [Concomitant]
     Active Substance: ACYCLOVIR
  14. MELATONIN [Concomitant]
     Active Substance: MELATONIN
  15. GLUCOSAMINE/METHYLSULFONYLMETHANE [Concomitant]
     Dosage: 500?500 MG
  16. VELTASSA [Concomitant]
     Active Substance: PATIROMER
     Dosage: PACKET
  17. LISINOPRIL. [Concomitant]
     Active Substance: LISINOPRIL
  18. ELIQUIS [Concomitant]
     Active Substance: APIXABAN
  19. BIOTENE MOISTURIZING [Concomitant]
  20. OMEGA 3?6?9 [Concomitant]
     Active Substance: FISH OIL
  21. MAGNESIUM OXIDE. [Concomitant]
     Active Substance: MAGNESIUM OXIDE
  22. ROBITUSSIN LONG?ACTING [Concomitant]
  23. PROBIOTIC 10B CELL [Concomitant]
  24. ALDACTONE [Concomitant]
     Active Substance: SPIRONOLACTONE
  25. PRAVASTATIN SODIUM. [Concomitant]
     Active Substance: PRAVASTATIN SODIUM
  26. LASIX [Concomitant]
     Active Substance: FUROSEMIDE
  27. CYCLOBENZAPRINE HCL [Concomitant]
     Active Substance: CYCLOBENZAPRINE HYDROCHLORIDE
  28. VITAMIN D3 [Concomitant]
     Active Substance: CHOLECALCIFEROL

REACTIONS (1)
  - Hip arthroplasty [Recovering/Resolving]

NARRATIVE: CASE EVENT DATE: 20210420
